FAERS Safety Report 4507422-9 (Version None)
Quarter: 2004Q4

REPORT INFORMATION
  Report Type: 
  Country: None (occurrence: None)
  Receive Date: 20041118
  Receipt Date: 20041104
  Transmission Date: 20050328
  Serious: Yes (Other)
  Sender: FDA-Public Use
  Company Number: 210246

PATIENT
  Sex: 0

DRUGS (1)
  1. RITUXAN [Suspect]

REACTIONS (1)
  - HEPATITIS FULMINANT [None]
